FAERS Safety Report 10609847 (Version 1)
Quarter: 2014Q4

REPORT INFORMATION
  Report Type: Spontaneous
  Country: US (occurrence: US)
  Receive Date: 20141126
  Receipt Date: 20141126
  Transmission Date: 20150529
  Serious: Yes (Other)
  Sender: FDA-Public Use
  Company Number: US-ASTRAZENECA-2014SE88711

PATIENT
  Age: 74 Year
  Sex: Male
  Weight: 73.5 kg

DRUGS (3)
  1. LISINOPRIL. [Suspect]
     Active Substance: LISINOPRIL
     Indication: BLOOD PRESSURE
     Route: 048
     Dates: start: 2004
  2. PULMICORT FLEXHALER [Suspect]
     Active Substance: BUDESONIDE
     Indication: CHRONIC OBSTRUCTIVE PULMONARY DISEASE
     Dosage: 180MCG 1PUFF TWICE A DAY
     Route: 055
     Dates: start: 2014
  3. ALBUTEROL IPRATROPIUM BROMIDE [Concomitant]
     Route: 055

REACTIONS (8)
  - Myocardial infarction [Recovered/Resolved]
  - Bronchitis [Unknown]
  - Oxygen saturation decreased [Unknown]
  - Drug dose omission [Not Recovered/Not Resolved]
  - Off label use [Not Recovered/Not Resolved]
  - Exercise tolerance decreased [Unknown]
  - Chronic obstructive pulmonary disease [Not Recovered/Not Resolved]
  - Dyspnoea [Unknown]

NARRATIVE: CASE EVENT DATE: 2014
